FAERS Safety Report 8353051-9 (Version None)
Quarter: 2012Q2

REPORT INFORMATION
  Report Type: 
  Country: None (occurrence: None)
  Receive Date: 20120511
  Receipt Date: 20120507
  Transmission Date: 20120825
  Serious: Yes (Hospitalization)
  Sender: FDA-Public Use
  Company Number: GB-PFIZER INC-2012111758

PATIENT
  Age: 69 Year
  Sex: Male
  Weight: 77 kg

DRUGS (7)
  1. RANITIDINE [Concomitant]
     Indication: STRESS ULCER
     Dosage: 150 MG, 2X/DAY
     Route: 048
  2. BISOPROLOL FUMARATE [Concomitant]
     Indication: ATRIAL FIBRILLATION
     Dosage: 5 MG, 1X/DAY
     Route: 048
  3. TEMAZEPAM [Concomitant]
     Indication: INSOMNIA
     Dosage: 20 MG, 1X/DAY
     Route: 048
  4. DIGOXIN [Concomitant]
     Indication: ATRIAL FIBRILLATION
     Dosage: 250 MG, UNK
     Route: 048
  5. LINEZOLID [Suspect]
     Indication: BACTERIAL DISEASE CARRIER
     Route: 042
     Dates: start: 20120425, end: 20120426
  6. CITALOPRAM [Suspect]
     Indication: DEPRESSION
     Dosage: 20 MG, UNK
     Route: 048
     Dates: end: 20120426
  7. ENOXAPARIN [Concomitant]
     Indication: THROMBOSIS PROPHYLAXIS
     Dosage: 40 MG, UNK
     Route: 058

REACTIONS (2)
  - TACHYCARDIA [None]
  - HYPOTENSION [None]
